FAERS Safety Report 24702884 (Version 2)
Quarter: 2024Q4

REPORT INFORMATION
  Report Type: Spontaneous
  Country: US (occurrence: US)
  Receive Date: 20241205
  Receipt Date: 20241205
  Transmission Date: 20250114
  Serious: Yes (Death)
  Sender: ROCHE
  Company Number: US-ROCHE-10000148685

PATIENT
  Sex: Female

DRUGS (4)
  1. ALECENSA [Suspect]
     Active Substance: ALECTINIB HYDROCHLORIDE
     Indication: Metastases to central nervous system
     Dosage: TAKE 4 CAPSULES BY MOUTH TWICE DAILY WITH BREAKFAST AND DINNER.
     Route: 048
     Dates: start: 20161230
  2. CALCIUM CARBONATE [Concomitant]
     Active Substance: CALCIUM CARBONATE
  3. GEMTESA [Concomitant]
     Active Substance: VIBEGRON
  4. JARDIANCE [Concomitant]
     Active Substance: EMPAGLIFLOZIN

REACTIONS (2)
  - Off label use [Unknown]
  - Death [Fatal]
